FAERS Safety Report 4798146-1 (Version None)
Quarter: 2005Q4

REPORT INFORMATION
  Report Type: 
  Country: None (occurrence: None)
  Receive Date: 20051006
  Receipt Date: 20051006
  Transmission Date: 20060501
  Serious: Yes (Hospitalization)
  Sender: FDA-Public Use
  Company Number: None

PATIENT
  Sex: Female

DRUGS (1)
  1. INSULIN [Suspect]
     Indication: DIABETES MELLITUS NON-INSULIN-DEPENDENT
     Dosage: SEE IMAGE

REACTIONS (3)
  - DIABETIC KETOACIDOSIS [None]
  - DRUG ABUSER [None]
  - GLYCOSYLATED HAEMOGLOBIN INCREASED [None]
